FAERS Safety Report 17017581 (Version 14)
Quarter: 2020Q2

REPORT INFORMATION
  Report Type: Spontaneous
  Country: AR (occurrence: AR)
  Receive Date: 20191111
  Receipt Date: 20200521
  Transmission Date: 20200713
  Serious: Yes (Hospitalization, Other)
  Sender: FDA-Public Use
  Company Number: AR-MYLANLABS-2019M1093063

PATIENT
  Age: 28 Year
  Sex: Female

DRUGS (4)
  1. LAPENAX [Suspect]
     Active Substance: CLOZAPINE
     Indication: INTELLECTUAL DISABILITY
     Dosage: UNK
     Dates: start: 20151229
  2. LAPENAX [Suspect]
     Active Substance: CLOZAPINE
     Dosage: UNK
     Dates: start: 20160401
  3. LAPENAX [Suspect]
     Active Substance: CLOZAPINE
     Dosage: UNK
     Dates: start: 201806
  4. PHENYTOIN SODIUM. [Concomitant]
     Active Substance: PHENYTOIN SODIUM
     Dosage: UNK

REACTIONS (5)
  - Seizure [Unknown]
  - Neutropenia [Recovered/Resolved]
  - Leukopenia [Recovered/Resolved]
  - Intentional self-injury [Unknown]
  - Off label use [Unknown]

NARRATIVE: CASE EVENT DATE: 20151229
